FAERS Safety Report 9654373 (Version 2)
Quarter: 2014Q1

REPORT INFORMATION
  Report Type: Report from Study
  Country: DE (occurrence: TR)
  Receive Date: 20131029
  Receipt Date: 20140120
  Transmission Date: 20141002
  Serious: Yes (Other)
  Sender: FDA-Public Use
  Company Number: DE-ACTELION-A-NJ2013-90560

PATIENT
  Age: 2 Year
  Sex: Male
  Weight: 11 kg

DRUGS (1)
  1. VENTAVIS [Suspect]
     Indication: PRODUCT USED FOR UNKNOWN INDICATION
     Dosage: UNK UNK, TID
     Route: 055
     Dates: start: 20130620, end: 201311

REACTIONS (3)
  - Ventricular septal defect repair [Recovered/Resolved]
  - Pulmonary arterial pressure decreased [Recovered/Resolved]
  - Off label use [Unknown]
